FAERS Safety Report 22120271 (Version 2)
Quarter: 2023Q2

REPORT INFORMATION
  Report Type: Report from Study
  Country: CA (occurrence: CA)
  Receive Date: 20230321
  Receipt Date: 20230503
  Transmission Date: 20230722
  Serious: Yes (Other)
  Sender: FDA-Public Use
  Company Number: CA-JNJFOC-20221062220

PATIENT
  Age: 75 Year
  Sex: Female

DRUGS (3)
  1. REMICADE [Suspect]
     Active Substance: INFLIXIMAB
     Indication: Rheumatoid arthritis
     Route: 042
     Dates: start: 20200413, end: 20230321
  2. TOZINAMERAN [Suspect]
     Active Substance: TOZINAMERAN
     Indication: COVID-19 prophylaxis
     Dosage: 17-OCT-2022 GIVEN COVID SHOT. THE PATIENT RECEIVED 5 PFIZER SHOTS.
     Route: 065
  3. INFLUENZA VIRUS VACCINE [Concomitant]
     Active Substance: INFLUENZA VIRUS VACCINE
     Indication: Prophylaxis
     Route: 065

REACTIONS (7)
  - Deafness unilateral [Unknown]
  - Influenza [Recovered/Resolved]
  - Sinus congestion [Recovering/Resolving]
  - Respiratory tract congestion [Unknown]
  - Asthenia [Unknown]
  - Eye disorder [Unknown]
  - Nausea [Unknown]

NARRATIVE: CASE EVENT DATE: 20220101
